FAERS Safety Report 12905059 (Version 1)
Quarter: 2016Q4

REPORT INFORMATION
  Report Type: Spontaneous
  Country: US (occurrence: US)
  Receive Date: 20161102
  Receipt Date: 20161102
  Transmission Date: 20170207
  Serious: Yes (Other)
  Sender: FDA-Public Use
  Company Number: US-SAOL THERAPEUTICS-2016SAO00963

PATIENT
  Age: 70 Year
  Sex: Male

DRUGS (2)
  1. LIORESAL [Suspect]
     Active Substance: BACLOFEN
     Dosage: 322 ?G, \DAY
     Route: 037
  2. LIORESAL [Suspect]
     Active Substance: BACLOFEN
     Dosage: 100 ?G, \DAY

REACTIONS (4)
  - Implant site fibrosis [Recovered/Resolved]
  - Device occlusion [Recovered/Resolved]
  - Implant site extravasation [Recovered/Resolved]
  - Muscle spasticity [Recovered/Resolved]
